FAERS Safety Report 8202457-7 (Version None)
Quarter: 2012Q1

REPORT INFORMATION
  Report Type: 
  Country: None (occurrence: None)
  Receive Date: 20120312
  Receipt Date: 20120124
  Transmission Date: 20120608
  Serious: No
  Sender: FDA-Public Use
  Company Number: US-ABBOTT-12P-163-0896530-00

PATIENT
  Sex: Female
  Weight: 68.1 kg

DRUGS (2)
  1. DEPAKOTE [Suspect]
     Indication: CONVULSION
  2. DESARIL [Concomitant]
     Indication: PRODUCT USED FOR UNKNOWN INDICATION

REACTIONS (1)
  - VOMITING [None]
